FAERS Safety Report 21458342 (Version 1)
Quarter: 2022Q4

REPORT INFORMATION
  Report Type: Spontaneous
  Country: ZA (occurrence: ZA)
  Receive Date: 20221014
  Receipt Date: 20221014
  Transmission Date: 20230113
  Serious: Yes (Hospitalization, Other)
  Sender: FDA-Public Use
  Company Number: ZA-PFIZER INC-PV202200079548

PATIENT
  Age: 44 Year
  Sex: Female
  Weight: 85 kg

DRUGS (1)
  1. METHOTREXATE SODIUM [Suspect]
     Active Substance: METHOTREXATE SODIUM
     Indication: Psoriatic arthropathy
     Dosage: 25 MG, WEEKLY
     Dates: start: 202012, end: 202108

REACTIONS (3)
  - Drug reaction with eosinophilia and systemic symptoms [Unknown]
  - Toxicity to various agents [Unknown]
  - Condition aggravated [Unknown]

NARRATIVE: CASE EVENT DATE: 20220801
